FAERS Safety Report 16414802 (Version 3)
Quarter: 2019Q4

REPORT INFORMATION
  Report Type: Spontaneous
  Country: US (occurrence: US)
  Receive Date: 20190611
  Receipt Date: 20191120
  Transmission Date: 20200122
  Serious: No
  Sender: FDA-Public Use
  Company Number: US-PFIZER INC-2019244945

PATIENT
  Age: 62 Year
  Sex: Male
  Weight: 100 kg

DRUGS (8)
  1. VIAGRA [Suspect]
     Active Substance: SILDENAFIL CITRATE
     Indication: SEXUAL DYSFUNCTION
     Dosage: 50 MG, (I AM TAKING IT WHEN I WANT TO HAVE SEX, MAY BE LIKE ONCE A WEEK.)
  2. GLIMEPIRIDE. [Concomitant]
     Active Substance: GLIMEPIRIDE
     Indication: DIABETES MELLITUS
     Dosage: 4 MG, DAILY (1 PO, DAILY)
     Route: 048
     Dates: start: 20161112
  3. JANUMET [Concomitant]
     Active Substance: METFORMIN HYDROCHLORIDE\SITAGLIPTIN PHOSPHATE
     Indication: DIABETES MELLITUS
     Dosage: 1 DF, DAILY (100/1000MG) DAILY
     Route: 048
     Dates: start: 20171007
  4. LOSARTAN. [Concomitant]
     Active Substance: LOSARTAN
     Indication: HYPERTENSION
     Dosage: 1 DF, DAILY (1 PO, DAILY)
     Route: 048
     Dates: start: 20180220
  5. METOPROLOL SUCCINATE. [Concomitant]
     Active Substance: METOPROLOL SUCCINATE
     Indication: HYPERTENSION
     Dosage: 100 MG, DAILY (1 PO, DAILY)
     Route: 048
     Dates: start: 20161209
  6. HCTZ [Concomitant]
     Active Substance: HYDROCHLOROTHIAZIDE
     Indication: HYPERTENSION
     Dosage: 1 DF, DAILY 1 PO, DAILY)
     Route: 048
     Dates: start: 20170307
  7. AMLODIPINE [Concomitant]
     Active Substance: AMLODIPINE BESYLATE
     Indication: HYPERTENSION
     Dosage: 10 MG, DAILY (1 PO, DAILY)
     Route: 048
     Dates: start: 20170331
  8. VIAGRA [Suspect]
     Active Substance: SILDENAFIL CITRATE
     Indication: ERECTILE DYSFUNCTION
     Dosage: 100 MG, 1X/DAY (1 TABLET ONCE A DAY, AS NEEDED)
     Route: 048
     Dates: start: 20181206

REACTIONS (2)
  - Product dispensing error [Unknown]
  - Drug ineffective [Not Recovered/Not Resolved]
